FAERS Safety Report 11636338 (Version 1)
Quarter: 2015Q4

REPORT INFORMATION
  Report Type: Spontaneous
  Country: US (occurrence: None)
  Receive Date: 20151015
  Receipt Date: 20151015
  Transmission Date: 20160304
  Serious: Yes (Hospitalization)
  Sender: FDA-Public Use
  Company Number: None

PATIENT
  Age: 54 Year
  Sex: Female
  Weight: 43.55 kg

DRUGS (13)
  1. CHLORTHALIDONE. [Concomitant]
     Active Substance: CHLORTHALIDONE
  2. NITROFURANTOIN 100 MG ALVOGEN [Suspect]
     Active Substance: NITROFURANTOIN
     Indication: URINARY TRACT INFECTION
     Dosage: 14 PILLS
     Route: 048
     Dates: start: 20150919, end: 20150927
  3. ZINC [Concomitant]
     Active Substance: ZINC\ZINC CHLORIDE
  4. VITAMIN E [Concomitant]
     Active Substance: .ALPHA.-TOCOPHEROL
  5. ACTONEL [Concomitant]
     Active Substance: RISEDRONATE SODIUM
  6. D3 [Concomitant]
     Active Substance: 25-HYDROXYCHOLECALCIFEROL, 5-TRANS-
  7. VITAMIN D [Concomitant]
     Active Substance: CHOLECALCIFEROL
  8. ELAVIL [Concomitant]
     Active Substance: AMITRIPTYLINE HYDROCHLORIDE
  9. CENTRUM WOMEN^S 50+ [Concomitant]
  10. CALCIUM [Concomitant]
     Active Substance: CALCIUM
  11. KLOR-CON M20 [Concomitant]
     Active Substance: POTASSIUM CHLORIDE
  12. MAGNESIUM [Concomitant]
     Active Substance: MAGNESIUM
  13. PROBIOTIC ^PEARLS^ [Concomitant]

REACTIONS (5)
  - Pulmonary oedema [None]
  - Pyrexia [None]
  - Headache [None]
  - Abdominal discomfort [None]
  - Chest discomfort [None]

NARRATIVE: CASE EVENT DATE: 20150928
